FAERS Safety Report 6957517-5 (Version None)
Quarter: 2010Q3

REPORT INFORMATION
  Report Type: 
  Country: None (occurrence: None)
  Receive Date: 20100831
  Receipt Date: 20100820
  Transmission Date: 20110219
  Serious: Yes (Life-Threatening, Hospitalization)
  Sender: FDA-Public Use
  Company Number: US-SANOFI-AVENTIS-2010SA042184

PATIENT
  Age: 78 Year
  Sex: Male
  Weight: 69.09 kg

DRUGS (8)
  1. PLAVIX [Suspect]
     Route: 048
     Dates: start: 20100109, end: 20100501
  2. PLAVIX [Suspect]
     Route: 048
     Dates: start: 20100501, end: 20100715
  3. ASPIRIN [Suspect]
     Indication: STENT PLACEMENT
     Route: 048
     Dates: start: 20100109
  4. METFORMIN [Concomitant]
     Route: 048
     Dates: start: 20100116
  5. JANUVIA [Concomitant]
     Route: 048
     Dates: start: 20100117
  6. COREG [Concomitant]
     Route: 048
     Dates: start: 20100118
  7. BENAZEPRIL HYDROCHLORIDE [Concomitant]
     Route: 048
     Dates: start: 20100118
  8. LIPITOR [Concomitant]
     Route: 048

REACTIONS (6)
  - ACUTE PULMONARY OEDEMA [None]
  - ANXIETY [None]
  - CHEST PAIN [None]
  - DYSPNOEA [None]
  - HYPERTENSIVE CRISIS [None]
  - IN-STENT CORONARY ARTERY RESTENOSIS [None]
